FAERS Safety Report 7058039-6 (Version None)
Quarter: 2010Q4

REPORT INFORMATION
  Report Type: 
  Country: None (occurrence: None)
  Receive Date: 20101022
  Receipt Date: 20101012
  Transmission Date: 20110411
  Serious: Yes (Hospitalization, Disabling)
  Sender: FDA-Public Use
  Company Number: FR-SANOFI-AVENTIS-A02200902609

PATIENT
  Age: 75 Year
  Sex: Female

DRUGS (3)
  1. CLOPIDOGREL BISULFATE [Suspect]
     Indication: PRODUCT USED FOR UNKNOWN INDICATION
     Dosage: UNIT DOSE: 75 MG
     Route: 048
     Dates: start: 20090407
  2. LASIX [Suspect]
     Dosage: UNIT DOSE: 40 MG
     Route: 048
     Dates: start: 20090407
  3. FLECAINIDE ACETATE [Suspect]
     Dosage: UNIT DOSE: 150 MG
     Route: 048
     Dates: start: 20080901, end: 20090415

REACTIONS (1)
  - PULMONARY OEDEMA [None]
